FAERS Safety Report 6099888-0 (Version None)
Quarter: 2009Q1

REPORT INFORMATION
  Report Type: 
  Country: None (occurrence: None)
  Receive Date: 20090303
  Receipt Date: 20090219
  Transmission Date: 20090719
  Serious: Yes (Hospitalization)
  Sender: FDA-Public Use
  Company Number: GB-TEVA-185978ISR

PATIENT
  Age: 9 Year
  Sex: Male
  Weight: 27.55 kg

DRUGS (1)
  1. METHOTREXATE [Suspect]
     Route: 058
     Dates: start: 20051123

REACTIONS (1)
  - JUVENILE ARTHRITIS [None]
